FAERS Safety Report 18246885 (Version 2)
Quarter: 2020Q4

REPORT INFORMATION
  Report Type: Report from Study
  Country: US (occurrence: US)
  Receive Date: 20200909
  Receipt Date: 20201012
  Transmission Date: 20210113
  Serious: Yes (Hospitalization, Other)
  Sender: FDA-Public Use
  Company Number: US-GLAXOSMITHKLINE-US2020AMR069871

PATIENT
  Age: 70 Year
  Sex: Female

DRUGS (5)
  1. NIRAPARIB [Suspect]
     Active Substance: NIRAPARIB
     Indication: OVARIAN CANCER
     Dosage: 300 MG, QD
     Route: 065
     Dates: start: 20200318
  2. NIRAPARIB [Suspect]
     Active Substance: NIRAPARIB
     Dosage: 200 MG, QD
     Route: 065
  3. NIRAPARIB [Suspect]
     Active Substance: NIRAPARIB
     Dosage: 200 MG, QD
     Route: 065
     Dates: start: 20200521
  4. NIRAPARIB [Suspect]
     Active Substance: NIRAPARIB
     Dosage: 300 MG, QD
     Route: 065
     Dates: start: 20200415
  5. NIRAPARIB [Suspect]
     Active Substance: NIRAPARIB
     Dosage: 200 MG, QD
     Route: 065

REACTIONS (15)
  - Blood pressure abnormal [Recovered/Resolved]
  - Fatigue [Recovered/Resolved]
  - Constipation [Recovered/Resolved]
  - Insomnia [Not Recovered/Not Resolved]
  - Blood pressure increased [Recovered/Resolved]
  - Tachycardia [Not Recovered/Not Resolved]
  - Heart rate increased [Recovering/Resolving]
  - Incarcerated hernia [Not Recovered/Not Resolved]
  - Nausea [Unknown]
  - Underdose [Unknown]
  - Hepatic neoplasm [Unknown]
  - Recurrent cancer [Unknown]
  - Joint swelling [Recovered/Resolved]
  - Feeling of body temperature change [Unknown]
  - Product dose omission issue [Unknown]

NARRATIVE: CASE EVENT DATE: 20200901
